FAERS Safety Report 9518086 (Version 1)
Quarter: 2013Q3

REPORT INFORMATION
  Report Type: Spontaneous
  Country: NL (occurrence: None)
  Receive Date: 20130910
  Receipt Date: 20130910
  Transmission Date: 20140515
  Serious: Yes (Hospitalization)
  Sender: FDA-Public Use
  Company Number: IMP_06811_2013

PATIENT
  Age: 75 Year
  Sex: Male

DRUGS (8)
  1. DIGOXIN [Suspect]
     Indication: PRODUCT USED FOR UNKNOWN INDICATION
     Dosage: (NOT THE PRESCRIBED DOSE) ORAL
     Route: 048
  2. SOTALOL [Suspect]
     Indication: PRODUCT USED FOR UNKNOWN INDICATION
     Dosage: (NOT THE PRESCRIBED DOSE) ORAL..UNTIL NOT CONTINUING?
     Route: 048
  3. ISOSORBIDE MONONITRATE [Suspect]
     Indication: PRODUCT USED FOR UNKNOWN INDICATION
     Dosage: (NOT PRESCRIBED DOSE) ORAL, UNTIL NOT CONTINUING?
     Route: 048
  4. ACENOCOUMAROL [Suspect]
     Indication: PRODUCT USED FOR UNKNOWN INDICATION
     Dosage: [NOT THE PRESCRIBED DOSE] ORAL?UNTIL NOT CONTINUING?
     Route: 048
  5. ATORVASTATINE [Suspect]
     Indication: PRODUCT USED FOR UNKNOWN INDICATION
     Dosage: [NOT PRESCRIBED DOSE] ORAL?UNTIL NOT CONTINUING?
     Route: 048
  6. PERINDOPRIL [Suspect]
     Indication: PRODUCT USED FOR UNKNOWN INDICATION
     Dosage: [NOT PRESCRIBED DOSE] ORAL?UNTIL NOT CONTINUING?
     Route: 048
  7. FUROSEMIDE [Suspect]
     Indication: PRODUCT USED FOR UNKNOWN INDICATION
     Dosage: [NOT PRESCRIBED DOSE) ORAL ?UNKNOWN UNTIL NOT CONTINUING?
     Route: 048
  8. AMLODIPINE [Suspect]
     Indication: PRODUCT USED FOR UNKNOWN INDICATION
     Dosage: [NOT PRESCRIBED DOSE], ORAL?UNKNOWN UNTIL NOT CONTINUING?
     Route: 048

REACTIONS (4)
  - Cardiogenic shock [None]
  - Anuria [None]
  - Continuous haemodiafiltration [None]
  - Toxicity to various agents [None]
